FAERS Safety Report 7461330-2 (Version None)
Quarter: 2011Q2

REPORT INFORMATION
  Report Type: 
  Country: None (occurrence: None)
  Receive Date: 20110506
  Receipt Date: 20110429
  Transmission Date: 20111010
  Serious: No
  Sender: FDA-Public Use
  Company Number: US-BIOGENIDEC-2011BI016446

PATIENT
  Age: 27 Year
  Sex: Male

DRUGS (2)
  1. TYSABRI [Suspect]
     Indication: MULTIPLE SCLEROSIS
     Route: 042
     Dates: start: 20110323
  2. TYSABRI [Suspect]
     Route: 042
     Dates: start: 20100823, end: 20100823

REACTIONS (4)
  - APHASIA [None]
  - SENSORY DISTURBANCE [None]
  - HYPOTENSION [None]
  - CHILLS [None]
